FAERS Safety Report 17980564 (Version 5)
Quarter: 2025Q2

REPORT INFORMATION
  Report Type: Report from Study
  Country: US (occurrence: US)
  Receive Date: 20200704
  Receipt Date: 20250624
  Transmission Date: 20250717
  Serious: No
  Sender: TAKEDA
  Company Number: US-SHIRE-US202021571

PATIENT
  Age: 76 Year
  Sex: Female

DRUGS (7)
  1. TEDUGLUTIDE [Suspect]
     Active Substance: TEDUGLUTIDE
     Indication: Short-bowel syndrome
  2. TEDUGLUTIDE [Suspect]
     Active Substance: TEDUGLUTIDE
  3. TEDUGLUTIDE [Suspect]
     Active Substance: TEDUGLUTIDE
  4. TEDUGLUTIDE [Suspect]
     Active Substance: TEDUGLUTIDE
     Dosage: UNK UNK, QOD
  5. TEDUGLUTIDE [Suspect]
     Active Substance: TEDUGLUTIDE
     Dosage: 0.28 MILLILITER, QD
  6. TEDUGLUTIDE [Suspect]
     Active Substance: TEDUGLUTIDE
  7. CANNABIDIOL [Concomitant]
     Active Substance: CANNABIDIOL

REACTIONS (17)
  - Neck pain [Unknown]
  - Wrist fracture [Not Recovered/Not Resolved]
  - Arthritis [Unknown]
  - Asthma [Unknown]
  - Brain fog [Unknown]
  - Osteoporosis [Unknown]
  - Dizziness [Unknown]
  - COVID-19 [Unknown]
  - Diarrhoea [Not Recovered/Not Resolved]
  - Hypotonia [Unknown]
  - Product availability issue [Unknown]
  - Inappropriate schedule of product administration [Unknown]
  - Vaginal cyst [Unknown]
  - Dermal cyst [Unknown]
  - Influenza [Unknown]
  - Polyp [Unknown]
  - Constipation [Recovering/Resolving]

NARRATIVE: CASE EVENT DATE: 20200602
